FAERS Safety Report 10032415 (Version 2)
Quarter: 2014Q2

REPORT INFORMATION
  Report Type: Spontaneous
  Country: DE (occurrence: None)
  Receive Date: 20140320
  Receipt Date: 20140411
  Transmission Date: 20141212
  Serious: Yes (Other)
  Sender: FDA-Public Use
  Company Number: 1403-0525

PATIENT
  Age: 84 Year
  Sex: Male

DRUGS (1)
  1. EYLEA (AFLIBERCEPT) (SOLUTION FOR INJECTION) (AFLIBERCEPT) [Suspect]
     Indication: POLYPOIDAL CHOROIDAL VASCULOPATHY
     Dosage: 2MG ONCE, INTRAOCULAR.
     Route: 031

REACTIONS (6)
  - Drug ineffective [None]
  - Detachment of retinal pigment epithelium [None]
  - Polypoidal choroidal vasculopathy [None]
  - Condition aggravated [None]
  - Subretinal haematoma [None]
  - Visual acuity reduced [None]
